FAERS Safety Report 7369309-6 (Version None)
Quarter: 2011Q1

REPORT INFORMATION
  Report Type: 
  Country: None (occurrence: None)
  Receive Date: 20110323
  Receipt Date: 20110314
  Transmission Date: 20110831
  Serious: Yes (Hospitalization)
  Sender: FDA-Public Use
  Company Number: B0699741A

PATIENT
  Sex: Female

DRUGS (2)
  1. AVANDAMET [Suspect]
     Indication: DIABETES MELLITUS
     Route: 048
  2. AMARYL [Concomitant]

REACTIONS (5)
  - PULMONARY ARTERIOPATHY [None]
  - FEMORAL ARTERY OCCLUSION [None]
  - PERIPHERAL VASCULAR DISORDER [None]
  - HYPERTENSION [None]
  - OSTEOPOROSIS [None]
